FAERS Safety Report 6748506-4 (Version None)
Quarter: 2010Q2

REPORT INFORMATION
  Report Type: 
  Country: None (occurrence: None)
  Receive Date: 20100526
  Receipt Date: 20100506
  Transmission Date: 20101027
  Serious: No
  Sender: FDA-Public Use
  Company Number: 2010-00403

PATIENT
  Age: 71 Year
  Sex: Female
  Weight: 68.0396 kg

DRUGS (4)
  1. ZICAM COLD REMEDY EXTREME CONGESTION NASAL GEL [Suspect]
     Dosage: BID X 2 DAYS,QD X 2 DAYS
     Dates: start: 20100502, end: 20100504
  2. SUDAFED 12 HOUR [Concomitant]
  3. LIPITOR [Concomitant]
  4. SYNTHROID [Concomitant]

REACTIONS (4)
  - AGEUSIA [None]
  - ANOSMIA [None]
  - NAUSEA [None]
  - VOMITING [None]
